FAERS Safety Report 8077984-6 (Version None)
Quarter: 2012Q1

REPORT INFORMATION
  Report Type: 
  Country: None (occurrence: None)
  Receive Date: 20120127
  Receipt Date: 20110106
  Transmission Date: 20120608
  Serious: No
  Sender: FDA-Public Use
  Company Number: US-ABBOTT-11P-163-0695659-00

PATIENT
  Age: 56 Year
  Sex: Male

DRUGS (2)
  1. HUMIRA [Suspect]
     Indication: PSORIATIC ARTHROPATHY
  2. SULFASALAZINE [Concomitant]
     Indication: ARTHRITIS
     Route: 048

REACTIONS (2)
  - INJECTION SITE HAEMORRHAGE [None]
  - DEVICE MALFUNCTION [None]
